FAERS Safety Report 21163617 (Version 12)
Quarter: 2023Q2

REPORT INFORMATION
  Report Type: Report from Study
  Country: US (occurrence: US)
  Receive Date: 20220802
  Receipt Date: 20230616
  Transmission Date: 20230722
  Serious: Yes (Hospitalization, Other)
  Sender: FDA-Public Use
  Company Number: US-ABBVIE-21K-163-3999366-00

PATIENT
  Sex: Female
  Weight: 83.46 kg

DRUGS (10)
  1. IMBRUVICA [Suspect]
     Active Substance: IBRUTINIB
     Indication: Chronic lymphocytic leukaemia
     Dosage: FORM STRENGTH: 420MG
     Route: 048
     Dates: start: 201805, end: 20181222
  2. IMBRUVICA [Suspect]
     Active Substance: IBRUTINIB
     Indication: Chronic lymphocytic leukaemia
     Route: 048
     Dates: start: 20161003
  3. IMBRUVICA [Suspect]
     Active Substance: IBRUTINIB
     Indication: Chronic lymphocytic leukaemia
     Route: 048
     Dates: start: 20200316
  4. IMBRUVICA [Suspect]
     Active Substance: IBRUTINIB
     Indication: Chronic lymphocytic leukaemia
     Dosage: TIME INTERVAL: 0.33333333 DAYS
     Route: 048
     Dates: start: 20170316, end: 20180514
  5. IMBRUVICA [Suspect]
     Active Substance: IBRUTINIB
     Indication: Chronic lymphocytic leukaemia
     Route: 048
     Dates: start: 20130610
  6. IMBRUVICA [Suspect]
     Active Substance: IBRUTINIB
     Indication: Chronic lymphocytic leukaemia
     Dosage: TIME INTERVAL: 0.33333333 DAYS: FORM STRENGTH: 140MG
     Route: 048
     Dates: start: 20170316, end: 20180514
  7. IMBRUVICA [Suspect]
     Active Substance: IBRUTINIB
     Indication: Chronic lymphocytic leukaemia
     Route: 048
     Dates: start: 20130610
  8. TYLENOL [Suspect]
     Active Substance: ACETAMINOPHEN
     Indication: Product used for unknown indication
     Route: 065
  9. CEPHALEXIN [Concomitant]
     Active Substance: CEPHALEXIN
     Indication: Product used for unknown indication
  10. SULFAMETHOXAZOLE AND TRIMETHOPRIM [Suspect]
     Active Substance: SULFAMETHOXAZOLE\TRIMETHOPRIM
     Indication: Product used for unknown indication
     Route: 065

REACTIONS (22)
  - Hepatic haemorrhage [Unknown]
  - Urinary tract infection [Recovered/Resolved]
  - Arthropod sting [Recovering/Resolving]
  - Urinary tract infection [Recovering/Resolving]
  - Food allergy [Unknown]
  - Lower limb fracture [Recovered/Resolved]
  - Infection [Not Recovered/Not Resolved]
  - Protein urine present [Unknown]
  - Colitis [Not Recovered/Not Resolved]
  - Emotional disorder [Unknown]
  - Hypertonic bladder [Unknown]
  - Loss of personal independence in daily activities [Unknown]
  - Anxiety [Not Recovered/Not Resolved]
  - Diarrhoea [Recovered/Resolved]
  - Arthropod sting [Not Recovered/Not Resolved]
  - Swelling [Recovering/Resolving]
  - Diabetes mellitus [Unknown]
  - Hypersensitivity [Unknown]
  - Fall [Recovering/Resolving]
  - Clostridium difficile infection [Not Recovered/Not Resolved]
  - Mobility decreased [Unknown]
  - Nausea [Recovered/Resolved]

NARRATIVE: CASE EVENT DATE: 20220101
